FAERS Safety Report 5173523-8 (Version None)
Quarter: 2006Q4

REPORT INFORMATION
  Report Type: 
  Country: None (occurrence: None)
  Receive Date: 20061214
  Receipt Date: 20061127
  Transmission Date: 20070319
  Serious: Yes (Hospitalization, Other)
  Sender: FDA-Public Use
  Company Number: SG-RB-004512-06

PATIENT
  Sex: Male

DRUGS (1)
  1. SUBUTEX [Suspect]
     Dosage: DOSAGE UNKNOWN
     Route: 042

REACTIONS (2)
  - DRUG ABUSER [None]
  - VASCULAR PSEUDOANEURYSM [None]
